FAERS Safety Report 13576426 (Version 3)
Quarter: 2017Q2

REPORT INFORMATION
  Report Type: Report from Study
  Country: US (occurrence: US)
  Receive Date: 20170524
  Receipt Date: 20170612
  Transmission Date: 20170830
  Serious: Yes (Other)
  Sender: FDA-Public Use
  Company Number: US-GILEAD-2017-0274070

PATIENT
  Age: 41 Year
  Sex: Female
  Weight: 59 kg

DRUGS (2)
  1. AMBRISENTAN [Suspect]
     Active Substance: AMBRISENTAN
     Indication: PULMONARY ARTERIAL HYPERTENSION
     Dosage: 10 MG, QD
     Route: 065
  2. ADCIRCA [Concomitant]
     Active Substance: TADALAFIL

REACTIONS (5)
  - Syncope [Recovered/Resolved]
  - Micturition urgency [Unknown]
  - Dizziness [Recovered/Resolved]
  - Cardiovascular disorder [Not Recovered/Not Resolved]
  - Palpitations [Recovered/Resolved]
